FAERS Safety Report 14851023 (Version 3)
Quarter: 2019Q2

REPORT INFORMATION
  Report Type: Spontaneous
  Country: US (occurrence: US)
  Receive Date: 20180507
  Receipt Date: 20190423
  Transmission Date: 20190711
  Serious: Yes (Hospitalization, Other)
  Sender: FDA-Public Use
  Company Number: US-ASTRAZENECA-2018SE57662

PATIENT
  Age: 24865 Day
  Sex: Female
  Weight: 112.5 kg

DRUGS (27)
  1. LEVOFLOXACIN. [Concomitant]
     Active Substance: LEVOFLOXACIN
     Indication: KIDNEY INFECTION
     Route: 065
     Dates: start: 2008, end: 2015
  2. FUROSEMIDE. [Concomitant]
     Active Substance: FUROSEMIDE
     Indication: HYPERTENSION
     Route: 065
     Dates: start: 2006, end: 2017
  3. VITAMIN [Concomitant]
     Active Substance: VITAMINS
     Indication: NUTRITIONAL SUPPLEMENTATION
     Route: 065
  4. CLONIDINE. [Concomitant]
     Active Substance: CLONIDINE
     Route: 048
  5. LANOXIN [Concomitant]
     Active Substance: DIGOXIN
  6. BYSTOLIC [Concomitant]
     Active Substance: NEBIVOLOL HYDROCHLORIDE
  7. LASIX [Concomitant]
     Active Substance: FUROSEMIDE
     Dosage: 40.0MG ONCE/SINGLE ADMINISTRATION
     Route: 048
  8. ALDACTONE [Concomitant]
     Active Substance: SPIRONOLACTONE
     Indication: HYPERTENSION
     Route: 065
     Dates: start: 2006, end: 2017
  9. CEPHALEXIN. [Concomitant]
     Active Substance: CEPHALEXIN
     Indication: INFECTION
     Route: 065
     Dates: start: 2004, end: 2017
  10. ERGOCALCIFEROL. [Concomitant]
     Active Substance: ERGOCALCIFEROL
     Dosage: 50000 UNITS
     Route: 048
  11. CIPROFLOXACIN. [Concomitant]
     Active Substance: CIPROFLOXACIN
     Route: 065
     Dates: start: 2007, end: 2016
  12. METHYLPREDNISOLONE. [Concomitant]
     Active Substance: METHYLPREDNISOLONE
     Indication: INFLAMMATION
     Route: 065
     Dates: start: 2006, end: 2017
  13. SYNTHROID [Concomitant]
     Active Substance: LEVOTHYROXINE SODIUM
     Indication: THYROID DISORDER
     Dosage: 175 MCG ONCE/SINGLE ADMINISTRATION
     Route: 065
     Dates: start: 2008, end: 2017
  14. PEPCID [Concomitant]
     Active Substance: FAMOTIDINE
     Route: 065
     Dates: start: 2007, end: 2010
  15. NEXIUM [Suspect]
     Active Substance: ESOMEPRAZOLE MAGNESIUM
     Indication: GASTROOESOPHAGEAL REFLUX DISEASE
     Dosage: GENERIC (ESOMEPRAZOLE)40.0MG ONCE/SINGLE ADMINISTRATION
     Route: 048
     Dates: start: 2015, end: 2016
  16. FLECAINIDE [Concomitant]
     Active Substance: FLECAINIDE
     Route: 048
  17. SPIRONOLACTONE. [Concomitant]
     Active Substance: SPIRONOLACTONE
     Dosage: 50.0MG ONCE/SINGLE ADMINISTRATION
     Route: 048
  18. VERAPAMIL [Concomitant]
     Active Substance: VERAPAMIL HYDROCHLORIDE
     Route: 048
  19. DOCUSATE [Concomitant]
     Active Substance: DOCUSATE
  20. VERAPAMIL [Concomitant]
     Active Substance: VERAPAMIL HYDROCHLORIDE
  21. LASIX [Concomitant]
     Active Substance: FUROSEMIDE
  22. DOXYCYCLINE. [Concomitant]
     Active Substance: DOXYCYCLINE
     Indication: SKIN INFECTION
     Route: 065
     Dates: start: 2013, end: 2016
  23. ALTACE [Concomitant]
     Active Substance: RAMIPRIL
     Indication: HYPERTENSION
     Route: 065
     Dates: start: 2006, end: 2008
  24. TYLENOL [Concomitant]
     Active Substance: ACETAMINOPHEN
     Indication: PAIN
     Route: 065
  25. DURLAZA [Concomitant]
     Active Substance: ASPIRIN
     Dosage: 162.5MG ONCE/SINGLE ADMINISTRATION
     Route: 048
  26. NEXIUM [Suspect]
     Active Substance: ESOMEPRAZOLE MAGNESIUM
     Indication: GASTROOESOPHAGEAL REFLUX DISEASE
     Dosage: 40.0MG ONCE/SINGLE ADMINISTRATION
     Route: 048
     Dates: start: 20030930
  27. ELIQUIS [Concomitant]
     Active Substance: APIXABAN
     Route: 048

REACTIONS (2)
  - Renal impairment [Unknown]
  - Chronic kidney disease [Not Recovered/Not Resolved]

NARRATIVE: CASE EVENT DATE: 20161020
